FAERS Safety Report 5116168-8 (Version None)
Quarter: 2006Q3

REPORT INFORMATION
  Report Type: 
  Country: None (occurrence: None)
  Receive Date: 20060927
  Receipt Date: 20060711
  Transmission Date: 20061208
  Serious: Yes (Other)
  Sender: FDA-Public Use
  Company Number: US-BRISTOL-MYERS SQUIBB COMPANY-13440060

PATIENT
  Age: 7 Decade
  Sex: Female

DRUGS (1)
  1. DEFINITY [Suspect]
     Dosage: DOSE VALUE:  2/5 OF 1.3 CC

REACTIONS (1)
  - LOSS OF CONSCIOUSNESS [None]
